FAERS Safety Report 8775484 (Version 1)
Quarter: 2012Q4

REPORT INFORMATION
  Report Type: 
  Country: US (occurrence: US)
  Receive Date: 20120910
  Receipt Date: 20120910
  Transmission Date: 20130627
  Serious: Yes (Life-Threatening, Other)
  Sender: FDA-Public Use
  Company Number: US-BAXTER-2012BAX016168

PATIENT

DRUGS (2)
  1. 0.9% SODIUM CHLORIDE INJECTION [Suspect]
     Indication: CHELATION THERAPY
     Route: 042
  2. DEFEROXAMINE [Suspect]
     Indication: CHELATION THERAPY
     Route: 042

REACTIONS (3)
  - Dyspnoea [Unknown]
  - Cardio-respiratory arrest [Unknown]
  - Incorrect drug administration rate [Unknown]
